FAERS Safety Report 5350369-9 (Version None)
Quarter: 2007Q2

REPORT INFORMATION
  Report Type: 
  Country: None (occurrence: None)
  Receive Date: 20070606
  Receipt Date: 20070606
  Transmission Date: 20071010
  Serious: Yes (Other)
  Sender: FDA-Public Use
  Company Number: None

PATIENT
  Sex: Female
  Weight: 79.6063 kg

DRUGS (2)
  1. PROAIR HFA MDI IVAX [Suspect]
     Indication: ASTHMA
     Dosage: 2 INHALATIONS EVERY 4 TO 6 HOURS INHAL
     Route: 055
     Dates: start: 20060916, end: 20061220
  2. PROAIR HFA MDI IVAX [Suspect]
     Indication: HYPERSENSITIVITY
     Dosage: 2 INHALATIONS EVERY 4 TO 6 HOURS INHAL
     Route: 055
     Dates: start: 20060916, end: 20061220

REACTIONS (3)
  - DEVICE FAILURE [None]
  - INCORRECT DOSE ADMINISTERED [None]
  - PHARMACEUTICAL PRODUCT COMPLAINT [None]
